FAERS Safety Report 16763119 (Version 1)
Quarter: 2019Q3

REPORT INFORMATION
  Report Type: Spontaneous
  Country: US (occurrence: US)
  Receive Date: 20190902
  Receipt Date: 20190902
  Transmission Date: 20191005
  Serious: Yes (Hospitalization)
  Sender: FDA-Public Use
  Company Number: US-BRISTOL-MYERS SQUIBB COMPANY-BMS-2019-083467

PATIENT
  Age: 48 Year
  Sex: Female

DRUGS (2)
  1. YERVOY [Suspect]
     Active Substance: IPILIMUMAB
     Indication: COLORECTAL CANCER
     Dosage: 60 MILLIGRAM, Q3WK
     Route: 065
     Dates: start: 20190724
  2. OPDIVO [Suspect]
     Active Substance: NIVOLUMAB
     Indication: COLORECTAL CANCER
     Dosage: 177 MILLIGRAM, Q3WK
     Route: 065
     Dates: start: 20190724

REACTIONS (3)
  - Hypotension [Unknown]
  - Asthenia [Unknown]
  - Fatigue [Unknown]

NARRATIVE: CASE EVENT DATE: 20190808
